FAERS Safety Report 13575243 (Version 1)
Quarter: 2017Q2

REPORT INFORMATION
  Report Type: Spontaneous
  Country: GR (occurrence: GR)
  Receive Date: 20170524
  Receipt Date: 20170524
  Transmission Date: 20170830
  Serious: Yes (Hospitalization, Other)
  Sender: FDA-Public Use
  Company Number: GR-AMGEN-GRCSP2017078828

PATIENT
  Age: 17 Year
  Sex: Female

DRUGS (2)
  1. ENBREL [Suspect]
     Active Substance: ETANERCEPT
     Dosage: 1 DF, EVERY 20 DAYS
     Route: 058
     Dates: start: 2016, end: 2016
  2. ENBREL [Suspect]
     Active Substance: ETANERCEPT
     Indication: PRODUCT USED FOR UNKNOWN INDICATION
     Dosage: 1 DF, WEEKLY
     Route: 058
     Dates: start: 201412

REACTIONS (4)
  - Disease recurrence [Unknown]
  - Status epilepticus [Recovered/Resolved]
  - Epilepsy [Unknown]
  - Product use issue [Unknown]

NARRATIVE: CASE EVENT DATE: 201412
